FAERS Safety Report 21048783 (Version 1)
Quarter: 2022Q3

REPORT INFORMATION
  Report Type: Report from Study
  Country: US (occurrence: US)
  Receive Date: 20220706
  Receipt Date: 20220706
  Transmission Date: 20221027
  Serious: Yes (Other)
  Sender: FDA-Public Use
  Company Number: US-BoehringerIngelheim-2022-BI-179387

PATIENT
  Age: 80 Year
  Sex: Male

DRUGS (9)
  1. EMPAGLIFLOZIN [Suspect]
     Active Substance: EMPAGLIFLOZIN
     Indication: Type 2 diabetes mellitus
  2. ROSUVASTATIN [Concomitant]
     Active Substance: ROSUVASTATIN
     Indication: Diabetes mellitus
  3. ROSUVASTATIN [Concomitant]
     Active Substance: ROSUVASTATIN
     Indication: Cardiovascular disorder
  4. NIFEDIPINE [Concomitant]
     Active Substance: NIFEDIPINE
     Indication: Diabetes mellitus
  5. NIFEDIPINE [Concomitant]
     Active Substance: NIFEDIPINE
     Indication: Cardiovascular disorder
  6. METOPROLOL [Concomitant]
     Active Substance: METOPROLOL
     Indication: Diabetes mellitus
  7. METOPROLOL [Concomitant]
     Active Substance: METOPROLOL
     Indication: Cardiovascular disorder
  8. DABIGATRAN [Concomitant]
     Active Substance: DABIGATRAN
     Indication: Diabetes mellitus
  9. DABIGATRAN [Concomitant]
     Active Substance: DABIGATRAN
     Indication: Cardiovascular disorder

REACTIONS (1)
  - Euglycaemic diabetic ketoacidosis [Unknown]
